FAERS Safety Report 6829584-0 (Version None)
Quarter: 2010Q3

REPORT INFORMATION
  Report Type: 
  Country: None (occurrence: None)
  Receive Date: 20100709
  Receipt Date: 20070421
  Transmission Date: 20110219
  Serious: No
  Sender: FDA-Public Use
  Company Number: US-PFIZER INC-2007013074

PATIENT
  Age: 40 Year
  Sex: Male

DRUGS (4)
  1. CHANTIX [Suspect]
     Indication: SMOKING CESSATION THERAPY
     Dates: start: 20061201
  2. MERCAPTOPURINE [Concomitant]
  3. ASACOL [Concomitant]
  4. EFFEXOR [Concomitant]

REACTIONS (3)
  - CROHN'S DISEASE [None]
  - DIARRHOEA [None]
  - FREQUENT BOWEL MOVEMENTS [None]
